FAERS Safety Report 4316151-6 (Version None)
Quarter: 2004Q1

REPORT INFORMATION
  Report Type: 
  Country: None (occurrence: None)
  Receive Date: 20040311
  Receipt Date: 20040311
  Transmission Date: 20041129
  Serious: No
  Sender: FDA-Public Use
  Company Number: None

PATIENT
  Sex: Male
  Weight: 97 kg

DRUGS (7)
  1. SEROQUEL [Suspect]
     Indication: DEPRESSION
     Dosage: 325 MG QHS ORAL
     Route: 048
     Dates: start: 20040128, end: 20040201
  2. SEROQUEL [Suspect]
     Indication: POST-TRAUMATIC STRESS DISORDER
     Dosage: 325 MG QHS ORAL
     Route: 048
     Dates: start: 20040128, end: 20040201
  3. SILDENAFIL CITRATE [Concomitant]
  4. RPAZOSIN [Concomitant]
  5. ACETAMINOPHEN [Concomitant]
  6. OLANZAPINE [Concomitant]
  7. ETODOLAC [Concomitant]

REACTIONS (1)
  - HYPOTENSION [None]
